FAERS Safety Report 7627234-7 (Version None)
Quarter: 2011Q3

REPORT INFORMATION
  Report Type: 
  Country: None (occurrence: None)
  Receive Date: 20110714
  Receipt Date: 20110629
  Transmission Date: 20111222
  Serious: Yes (Other)
  Sender: FDA-Public Use
  Company Number: JP-2011-10797

PATIENT
  Age: 74 Year
  Sex: Male

DRUGS (10)
  1. PLETAL [Suspect]
     Indication: SINUS BRADYCARDIA
     Dosage: 100 MG MILLIGRAM(S), BID, ORAL;
     Route: 048
     Dates: start: 20100820, end: 20100909
  2. ISOSORBIDE DINITRATE [Concomitant]
  3. AMLODIPINE [Concomitant]
  4. ATARAX [Concomitant]
  5. CALTAN (CALCIUM CARBONATE) [Concomitant]
  6. RISUMIC (AMEZINIUM METISULFATE) [Concomitant]
  7. PROMAC (POLAPREZINC) [Concomitant]
  8. BIO-THREE (CLOSTRIDIUM BUTRICUM COMBINED DRUG) [Concomitant]
  9. ASPIRIN [Concomitant]
  10. REMITCH (NALFURAFINE HYDROCHLORIDE) [Concomitant]

REACTIONS (4)
  - EOSINOPHIL PERCENTAGE INCREASED [None]
  - GRANULOCYTE COUNT DECREASED [None]
  - NEUTROPHIL COUNT DECREASED [None]
  - WHITE BLOOD CELL COUNT DECREASED [None]
